FAERS Safety Report 8495347-6 (Version None)
Quarter: 2012Q2

REPORT INFORMATION
  Report Type: 
  Country: None (occurrence: None)
  Receive Date: 20120403
  Receipt Date: 20110401
  Transmission Date: 20120825
  Serious: Yes (Hospitalization, Disabling, Other)
  Sender: FDA-Public Use
  Company Number: 115012

PATIENT
  Age: 70 Year
  Sex: Male
  Weight: 75.7507 kg

DRUGS (1)
  1. ACETAZOLAMIDE [Suspect]
     Indication: HYPERTENSION
     Dosage: 1MG/1X/DAY,ORAL
     Route: 048

REACTIONS (3)
  - PNEUMONIA [None]
  - DIZZINESS [None]
  - RESPIRATORY DISORDER [None]
